FAERS Safety Report 6667865-4 (Version None)
Quarter: 2010Q2

REPORT INFORMATION
  Report Type: 
  Country: None (occurrence: None)
  Receive Date: 20100405
  Receipt Date: 20100324
  Transmission Date: 20101027
  Serious: Yes (Disabling)
  Sender: FDA-Public Use
  Company Number: FR-PFIZER INC-2010038095

PATIENT
  Age: 45 Year
  Sex: Male

DRUGS (5)
  1. CHAMPIX [Suspect]
     Indication: SMOKING CESSATION THERAPY
     Dosage: UNK
     Dates: start: 20100201, end: 20100303
  2. PYOSTACINE [Concomitant]
  3. PARIET [Concomitant]
  4. IXPRIM [Concomitant]
  5. XYLOCAINE [Concomitant]

REACTIONS (1)
  - APHTHOUS STOMATITIS [None]
